FAERS Safety Report 8184781-X (Version None)
Quarter: 2012Q1

REPORT INFORMATION
  Report Type: 
  Country: None (occurrence: None)
  Receive Date: 20120305
  Receipt Date: 20120305
  Transmission Date: 20120608
  Serious: Yes (Life-Threatening)
  Sender: FDA-Public Use
  Company Number: None

PATIENT
  Age: 62 Year
  Sex: Male
  Weight: 89.811 kg

DRUGS (1)
  1. AMBIEN [Suspect]
     Indication: INSOMNIA
     Dosage: 10MG
     Route: 048
     Dates: start: 20061115, end: 20070228

REACTIONS (3)
  - LOSS OF CONSCIOUSNESS [None]
  - HEAD INJURY [None]
  - CEREBRAL HAEMORRHAGE [None]
